FAERS Safety Report 12957068 (Version 1)
Quarter: 2016Q4

REPORT INFORMATION
  Report Type: Spontaneous
  Country: TN (occurrence: TN)
  Receive Date: 20161118
  Receipt Date: 20161118
  Transmission Date: 20170207
  Serious: Yes (Hospitalization)
  Sender: FDA-Public Use
  Company Number: TN-PERRIGO-16TN021716

PATIENT
  Age: 45 Year
  Sex: Female

DRUGS (3)
  1. NAPROXEN. [Suspect]
     Active Substance: NAPROXEN
     Indication: PSORIATIC ARTHROPATHY
     Dosage: 550 MG, QD,  PRN
     Route: 048
     Dates: start: 201211, end: 201301
  2. PREDNISONE. [Concomitant]
     Active Substance: PREDNISONE
     Indication: PSORIATIC ARTHROPATHY
     Dosage: 10 MG, QD
     Route: 048
     Dates: start: 201211
  3. METHOTREXATE. [Concomitant]
     Active Substance: METHOTREXATE
     Indication: PSORIATIC ARTHROPATHY
     Dosage: 20 MG, WEEKLY
     Route: 065
     Dates: start: 201211

REACTIONS (6)
  - Proteinuria [Recovered/Resolved]
  - Oedema peripheral [Recovered/Resolved]
  - Swelling face [Recovered/Resolved]
  - Blood creatinine increased [Recovered/Resolved]
  - Tubulointerstitial nephritis [Recovered/Resolved]
  - Glomerulonephritis minimal lesion [Recovered/Resolved]

NARRATIVE: CASE EVENT DATE: 201301
